FAERS Safety Report 4443437-7 (Version None)
Quarter: 2004Q3

REPORT INFORMATION
  Report Type: 
  Country: None (occurrence: None)
  Receive Date: 20040802
  Receipt Date: 20040601
  Transmission Date: 20050211
  Serious: No
  Sender: FDA-Public Use
  Company Number: 2004-117337-NL

PATIENT
  Age: 20 Year
  Sex: Female

DRUGS (3)
  1. NUVARING [Suspect]
     Indication: CONTRACEPTION
     Dosage: DF DAILY VAGINAL
     Route: 067
     Dates: start: 20040524
  2. NUVARING [Suspect]
     Indication: MOOD SWINGS
     Dosage: DF DAILY VAGINAL
     Route: 067
     Dates: start: 20040524
  3. TYLENOL [Concomitant]

REACTIONS (2)
  - INCREASED TENDENCY TO BRUISE [None]
  - MENORRHAGIA [None]
